FAERS Safety Report 7790935-4 (Version None)
Quarter: 2011Q3

REPORT INFORMATION
  Report Type: 
  Country: None (occurrence: None)
  Receive Date: 20110930
  Receipt Date: 20110930
  Transmission Date: 20111222
  Serious: Yes (Life-Threatening)
  Sender: FDA-Public Use
  Company Number: None

PATIENT
  Age: 44 Year
  Sex: Female
  Weight: 52.163 kg

DRUGS (1)
  1. VYVANSE [Suspect]
     Indication: ATTENTION DEFICIT/HYPERACTIVITY DISORDER
     Dosage: 30 MG
     Route: 048
     Dates: start: 20100101, end: 20110321

REACTIONS (6)
  - PSYCHOTIC DISORDER [None]
  - SENSORY DISTURBANCE [None]
  - PARANOIA [None]
  - HALLUCINATION, AUDITORY [None]
  - SUICIDE ATTEMPT [None]
  - CARDIAC FAILURE [None]
